FAERS Safety Report 5628628-1 (Version None)
Quarter: 2008Q1

REPORT INFORMATION
  Report Type: 
  Country: None (occurrence: None)
  Receive Date: 20080215
  Receipt Date: 20080206
  Transmission Date: 20080703
  Serious: Yes (Other)
  Sender: FDA-Public Use
  Company Number: US-PFIZER INC-2008011778

PATIENT
  Sex: Female

DRUGS (4)
  1. DEPO-MEDROL [Interacting]
     Indication: ARTHRITIS
     Dates: start: 20080125, end: 20080125
  2. MARCAINE [Suspect]
     Dates: start: 20080125, end: 20080125
  3. LIDOCAINE [Suspect]
     Dates: start: 20080125, end: 20080125
  4. VIVELLE-DOT [Interacting]

REACTIONS (19)
  - BLOOD CORTISOL DECREASED [None]
  - BLOOD GLUCOSE INCREASED [None]
  - BLOOD PRESSURE INCREASED [None]
  - DIARRHOEA [None]
  - DIZZINESS [None]
  - DRUG INTERACTION [None]
  - FLUSHING [None]
  - HEADACHE [None]
  - HEART RATE DECREASED [None]
  - INSOMNIA [None]
  - JOINT SWELLING [None]
  - NERVOUSNESS [None]
  - NEUTROPHIL COUNT INCREASED [None]
  - PAIN IN EXTREMITY [None]
  - PARAESTHESIA [None]
  - PLATELET COUNT INCREASED [None]
  - RASH [None]
  - TREMOR [None]
  - WHITE BLOOD CELL COUNT INCREASED [None]
